FAERS Safety Report 10218712 (Version 1)
Quarter: 2014Q2

REPORT INFORMATION
  Report Type: Spontaneous
  Country: US (occurrence: None)
  Receive Date: 20140604
  Receipt Date: 20140604
  Transmission Date: 20141212
  Serious: No
  Sender: FDA-Public Use
  Company Number: None

PATIENT
  Age: 65 Year
  Sex: Female

DRUGS (1)
  1. GABAPENTIN [Suspect]
     Indication: CONVULSION PROPHYLAXIS
     Dates: start: 20130901

REACTIONS (9)
  - Dizziness [None]
  - Dyskinesia [None]
  - Coordination abnormal [None]
  - Eye disorder [None]
  - Cerebrovascular accident [None]
  - Swelling [None]
  - Amnesia [None]
  - Speech disorder [None]
  - Agoraphobia [None]
